FAERS Safety Report 9607328 (Version 1)
Quarter: 2013Q4

REPORT INFORMATION
  Report Type: Spontaneous
  Country: US (occurrence: None)
  Receive Date: 20131007
  Receipt Date: 20131007
  Transmission Date: 20140711
  Serious: Yes (Disabling, Other)
  Sender: FDA-Public Use
  Company Number: None

PATIENT
  Age: 34 Year
  Sex: Female
  Weight: 57.61 kg

DRUGS (1)
  1. NOVOLOG [Suspect]
     Dosage: 12 UNITS, GIVEN INTO/UNDER THE SKIN
     Dates: start: 20110811, end: 20111020

REACTIONS (3)
  - Hallucination [None]
  - Blood glucose fluctuation [None]
  - Retinal vascular disorder [None]
